FAERS Safety Report 6788836-3 (Version None)
Quarter: 2010Q2

REPORT INFORMATION
  Report Type: 
  Country: None (occurrence: None)
  Receive Date: 20100623
  Receipt Date: 20080723
  Transmission Date: 20101027
  Serious: No
  Sender: FDA-Public Use
  Company Number: US-PFIZER INC-2008045306

PATIENT
  Sex: Female

DRUGS (8)
  1. XALATAN [Suspect]
     Indication: GLAUCOMA
  2. ENALAPRIL MALEATE [Concomitant]
  3. RISPERDAL [Concomitant]
  4. XANAX [Concomitant]
  5. DEPAKOTE [Concomitant]
  6. SEROQUEL [Concomitant]
  7. PROZAC [Concomitant]
  8. WELLBUTRIN [Concomitant]

REACTIONS (1)
  - MYDRIASIS [None]
